FAERS Safety Report 6790191-X (Version None)
Quarter: 2010Q2

REPORT INFORMATION
  Report Type: 
  Country: None (occurrence: None)
  Receive Date: 20100624
  Receipt Date: 20100609
  Transmission Date: 20101027
  Serious: Yes (Life-Threatening, Hospitalization)
  Sender: FDA-Public Use
  Company Number: GB-MYLANLABS-2010S1010441

PATIENT
  Age: 46 Year
  Sex: Female

DRUGS (20)
  1. SIMVASTATIN [Suspect]
     Indication: DRUG USE FOR UNKNOWN INDICATION
  2. SIMVASTATIN [Suspect]
  3. FUSIDIC ACID [Suspect]
     Indication: ARTHRITIS BACTERIAL
  4. ALFACALCIDOL [Concomitant]
     Indication: DRUG USE FOR UNKNOWN INDICATION
  5. ALUMINUM HYDROXIDE GEL [Concomitant]
     Indication: DRUG USE FOR UNKNOWN INDICATION
  6. ASPIRIN [Concomitant]
     Indication: DRUG USE FOR UNKNOWN INDICATION
  7. CALCIUM ACETATE [Concomitant]
     Indication: DRUG USE FOR UNKNOWN INDICATION
  8. CLONAZEPAM [Concomitant]
     Indication: DRUG USE FOR UNKNOWN INDICATION
  9. DILTIAZEM HYDROCHLORIDE [Concomitant]
     Indication: DRUG USE FOR UNKNOWN INDICATION
  10. EPOETIN NOS [Concomitant]
     Indication: DRUG USE FOR UNKNOWN INDICATION
  11. FLOXACILLIN SODIUM [Concomitant]
     Indication: DRUG USE FOR UNKNOWN INDICATION
  12. FOLIC ACID [Concomitant]
     Indication: DRUG USE FOR UNKNOWN INDICATION
  13. GENTAMICIN [Concomitant]
     Indication: DRUG USE FOR UNKNOWN INDICATION
  14. IRON SUCROSE [Concomitant]
     Indication: DRUG USE FOR UNKNOWN INDICATION
  15. MIXTARD HUMAN 70/30 [Concomitant]
     Indication: DIABETES MELLITUS
  16. NICORANDIL [Concomitant]
     Indication: DRUG USE FOR UNKNOWN INDICATION
  17. OROVITE [Concomitant]
     Indication: DRUG USE FOR UNKNOWN INDICATION
  18. PENICILLIN V /00001801/ [Concomitant]
     Indication: DRUG USE FOR UNKNOWN INDICATION
  19. SERTRALINE HYDROCHLORIDE [Concomitant]
     Indication: DRUG USE FOR UNKNOWN INDICATION
  20. WARFARIN [Concomitant]
     Indication: DRUG USE FOR UNKNOWN INDICATION

REACTIONS (2)
  - DRUG INTERACTION [None]
  - RHABDOMYOLYSIS [None]
